FAERS Safety Report 9666298 (Version 1)
Quarter: 2013Q4

REPORT INFORMATION
  Report Type: Spontaneous
  Country: GB (occurrence: GB)
  Receive Date: 20131104
  Receipt Date: 20131104
  Transmission Date: 20140711
  Serious: Yes (Other)
  Sender: FDA-Public Use
  Company Number: PHHY2013GB120117

PATIENT
  Age: 47 Year
  Sex: Female
  Weight: 114.3 kg

DRUGS (2)
  1. VENLAFAXINE [Suspect]
     Indication: DEPRESSION
     Dosage: 225 MG, UNK
     Route: 048
  2. CARBAMAZEPINE [Concomitant]

REACTIONS (7)
  - Malaise [Recovering/Resolving]
  - Tearfulness [Recovering/Resolving]
  - Emotional disorder [Recovering/Resolving]
  - Dizziness postural [Recovering/Resolving]
  - Dizziness [Recovering/Resolving]
  - Nausea [Recovering/Resolving]
  - Drug withdrawal syndrome [Recovering/Resolving]
